FAERS Safety Report 13755302 (Version 5)
Quarter: 2018Q2

REPORT INFORMATION
  Report Type: Spontaneous
  Country: US (occurrence: US)
  Receive Date: 20170714
  Receipt Date: 20180410
  Transmission Date: 20180711
  Serious: No
  Sender: FDA-Public Use
  Company Number: US-PFIZER INC-2017307296

PATIENT
  Age: 59 Year
  Sex: Female

DRUGS (2)
  1. SUTENT [Suspect]
     Active Substance: SUNITINIB MALATE
     Indication: RENAL CANCER STAGE IV
     Dosage: 50 MG, CYCLIC, (ONCE DAILY FOR 28 DAYS FOLLOWED BY 14 DAYS OFF)
     Route: 048
     Dates: start: 201707
  2. SUTENT [Suspect]
     Active Substance: SUNITINIB MALATE
     Dosage: 50 MG, CYCLIC (DAILY FOR TWO WEEKS THEN ONE WEEK OFF)
     Route: 048
     Dates: start: 201707

REACTIONS (14)
  - Vomiting [Unknown]
  - Pruritus [Recovered/Resolved]
  - Decreased appetite [Unknown]
  - Glossodynia [Unknown]
  - Skin discolouration [Recovered/Resolved]
  - Weight increased [Unknown]
  - Drug dose omission [Unknown]
  - Constipation [Recovered/Resolved]
  - Rash [Recovered/Resolved]
  - Oral discomfort [Unknown]
  - Hyperhidrosis [Unknown]
  - Nausea [Unknown]
  - Oral pain [Unknown]
  - Facial pain [Unknown]
